FAERS Safety Report 7497654-2 (Version None)
Quarter: 2011Q2

REPORT INFORMATION
  Report Type: 
  Country: None (occurrence: None)
  Receive Date: 20110523
  Receipt Date: 20110513
  Transmission Date: 20111010
  Serious: Yes (Hospitalization, Other)
  Sender: FDA-Public Use
  Company Number: PHHY2011DK40833

PATIENT
  Sex: Female

DRUGS (3)
  1. EMPERAL [Concomitant]
     Dosage: UNK UKN, UNK
  2. LOSARTAN POTASSIUM [Suspect]
     Indication: HYPERTENSION
     Dosage: STYRKE: 50MG
     Route: 048
     Dates: start: 20110504, end: 20110504
  3. CENTYL [Concomitant]
     Dosage: UNK UKN, UNK

REACTIONS (2)
  - CARDIOMEGALY [None]
  - DYSPNOEA [None]
